FAERS Safety Report 7905122-6 (Version None)
Quarter: 2011Q4

REPORT INFORMATION
  Report Type: 
  Country: None (occurrence: None)
  Receive Date: 20111109
  Receipt Date: 20111101
  Transmission Date: 20120403
  Serious: Yes (Hospitalization)
  Sender: FDA-Public Use
  Company Number: PHHY2011GB96302

PATIENT
  Age: 38 Year
  Sex: Female

DRUGS (4)
  1. CITALOPRAM HYDROBROMIDE [Concomitant]
     Dosage: UNK
  2. PROPRANOLOL [Concomitant]
     Dosage: UNK
  3. AMOXICILLIN [Suspect]
     Dosage: UNK
  4. HYDROCORTISONE [Concomitant]
     Route: 042

REACTIONS (3)
  - SWOLLEN TONGUE [None]
  - ANGIOEDEMA [None]
  - RASH [None]
